FAERS Safety Report 5371690-4 (Version None)
Quarter: 2007Q2

REPORT INFORMATION
  Report Type: 
  Country: None (occurrence: None)
  Receive Date: 20070625
  Receipt Date: 20070509
  Transmission Date: 20071010
  Serious: Yes (Other)
  Sender: FDA-Public Use
  Company Number: 805#1#2007-00049

PATIENT
  Age: 72 Year
  Sex: Male

DRUGS (8)
  1. ALPROSTADIL [Suspect]
     Indication: ARTERIOSCLEROSIS OBLITERANS
     Dosage: 60 MCG (60 MCG 1 IN 1 DAY(S)) INTRAVENOUS DRIP
     Route: 041
     Dates: start: 20070427, end: 20070428
  2. OMEPRAZOLE [Suspect]
     Indication: UPPER GASTROINTESTINAL HAEMORRHAGE
     Dosage: 40 MG INTRAVENOUS DRIP
     Route: 041
     Dates: start: 20070427, end: 20070430
  3. ETIZOLAM (ETIZOLAM) [Concomitant]
  4. ZOLPIDEM TARTRATE [Concomitant]
  5. FUROSEMIDE [Concomitant]
  6. POTASSIUM CANRENOATE (POTASSIUM CANRENOATE) [Concomitant]
  7. ACTIT (MAGNESIUM CHLORIDE ANHYDROUS, MALTOSE, POTASSIUM CHLORIDE, POTA [Concomitant]
  8. TIENAM (CILASTATIN, IMIPENEM) [Concomitant]

REACTIONS (18)
  - ACTIVITIES OF DAILY LIVING IMPAIRED [None]
  - ANAEMIA [None]
  - ARTERIOSCLEROSIS OBLITERANS [None]
  - BLOOD DISORDER [None]
  - BLOOD TRIGLYCERIDES INCREASED [None]
  - DEHYDRATION [None]
  - DEPRESSED LEVEL OF CONSCIOUSNESS [None]
  - DIABETIC COMPLICATION [None]
  - GANGRENE [None]
  - GASTROINTESTINAL HAEMORRHAGE [None]
  - HYPERCAPNIA [None]
  - HYPOGLYCAEMIA [None]
  - MELAENA [None]
  - MULTI-ORGAN FAILURE [None]
  - PNEUMONIA [None]
  - PROTEIN TOTAL DECREASED [None]
  - SUTURE RUPTURE [None]
  - WOUND INFECTION STAPHYLOCOCCAL [None]
